FAERS Safety Report 8035731-8 (Version None)
Quarter: 2012Q1

REPORT INFORMATION
  Report Type: 
  Country: None (occurrence: None)
  Receive Date: 20120111
  Receipt Date: 20120109
  Transmission Date: 20120608
  Serious: Yes (Hospitalization)
  Sender: FDA-Public Use
  Company Number: DE-BAYER-2011-106425

PATIENT
  Age: 48 Year
  Sex: Male

DRUGS (2)
  1. NEXAVAR [Suspect]
     Dosage: 200 MG TWICE DAILY
  2. NEXAVAR [Suspect]
     Indication: HEPATIC NEOPLASM MALIGNANT
     Dosage: 400 MG TWICE DAILY

REACTIONS (6)
  - HYPERBILIRUBINAEMIA [None]
  - ANXIETY [None]
  - HEPATIC FUNCTION ABNORMAL [None]
  - ASCITES [None]
  - ENCEPHALOPATHY [None]
  - FATIGUE [None]
